FAERS Safety Report 9066697 (Version 2)
Quarter: 2013Q2

REPORT INFORMATION
  Report Type: Spontaneous
  Country: US (occurrence: US)
  Receive Date: 20130214
  Receipt Date: 20130515
  Transmission Date: 20140414
  Serious: Yes (Other)
  Sender: FDA-Public Use
  Company Number: US-BAYER-2013-017810

PATIENT
  Age: 74 Year
  Sex: Female
  Weight: 56.69 kg

DRUGS (9)
  1. ALKA-SELTZER PLUS SEVERE SINUS CONGESTION, ALLERGY AND COUGH [Suspect]
     Indication: SINUS CONGESTION
     Dosage: 2 DF, 1ST DAY AND 1DF ON 2ND DAY
     Route: 048
     Dates: start: 20130206, end: 20130207
  2. ALKA-SELTZER PLUS SEVERE SINUS CONGESTION, ALLERGY AND COUGH [Suspect]
     Indication: SINUS CONGESTION
     Dosage: 2 DF, 1ST DAY AND 1DF ON 2ND DAY
     Route: 048
     Dates: start: 20130206, end: 20130207
  3. SYNTHROID [Concomitant]
     Dosage: 0.075 MG, QD
  4. FISH OIL [Concomitant]
     Dosage: UNK UNK, QD
  5. VITAMIN B12 [Concomitant]
     Dosage: 500 ?G, BID (WED+ SAT)
  6. CALCIUM [Concomitant]
     Dosage: 600 MG/W/D3, BID
  7. BAYER ASPIRIN REGIMEN ADULT LOW STRENGTH [Concomitant]
     Dosage: 81 MG, QD
  8. BIOTIN [Concomitant]
     Dosage: 5000 ?G, BID
  9. MUCINEX DM [Concomitant]

REACTIONS (1)
  - Foreign body [Recovered/Resolved]
